FAERS Safety Report 24237811 (Version 1)
Quarter: 2024Q3

REPORT INFORMATION
  Report Type: Spontaneous
  Country: IT (occurrence: IT)
  Receive Date: 20240822
  Receipt Date: 20240822
  Transmission Date: 20241016
  Serious: Yes (Other)
  Sender: HIKMA
  Company Number: None

PATIENT

DRUGS (6)
  1. CARBOPLATIN [Suspect]
     Active Substance: CARBOPLATIN
     Indication: Breast cancer
     Dosage: 300 MILLIGRAM
     Route: 042
     Dates: start: 20240711, end: 20240711
  2. PACLITAXEL [Suspect]
     Active Substance: PACLITAXEL
     Indication: Breast cancer
     Dosage: 160.2 MILLIGRAM
     Route: 042
     Dates: start: 20240711, end: 20240711
  3. CHOLECALCIFEROL [Concomitant]
     Active Substance: CHOLECALCIFEROL
     Indication: Product used for unknown indication
     Dosage: UNKNOWN
     Route: 065
  4. EN [Concomitant]
     Active Substance: DELORAZEPAM
     Indication: Product used for unknown indication
     Dosage: UNKNOWN
     Route: 065
  5. LASIX [Concomitant]
     Active Substance: FUROSEMIDE
     Indication: Product used for unknown indication
     Dosage: UNKNOWN
     Route: 065
  6. EZETIMIBE\ROSUVASTATIN CALCIUM [Concomitant]
     Active Substance: EZETIMIBE\ROSUVASTATIN CALCIUM
     Indication: Product used for unknown indication
     Dosage: UNKNOWN
     Route: 065

REACTIONS (2)
  - Off label use [Not Recovered/Not Resolved]
  - Thrombosis [Recovering/Resolving]

NARRATIVE: CASE EVENT DATE: 20240711
